FAERS Safety Report 18127238 (Version 1)
Quarter: 2020Q3

REPORT INFORMATION
  Report Type: Other
  Country: DK (occurrence: DK)
  Receive Date: 20200810
  Receipt Date: 20200810
  Transmission Date: 20201103
  Serious: Yes (Other)
  Sender: FDA-Public Use
  Company Number: DK-ROCHE-2655502

PATIENT

DRUGS (3)
  1. OXALIPLATIN. [Suspect]
     Active Substance: OXALIPLATIN
     Indication: BILE DUCT CANCER
     Dosage: EVERY SECOND WEEK
     Route: 065
  2. GEMCITABINE. [Suspect]
     Active Substance: GEMCITABINE
     Indication: BILE DUCT CANCER
     Dosage: EVERY SECOND WEEK
     Route: 065
  3. CAPECITABINE. [Suspect]
     Active Substance: CAPECITABINE
     Indication: BILE DUCT CANCER
     Dosage: CONTINUALLY IN A 2?WEEK CYCLE
     Route: 065

REACTIONS (15)
  - Peripheral sensory neuropathy [Unknown]
  - Pyrexia [Unknown]
  - Deafness [Unknown]
  - Anaemia [Unknown]
  - Diarrhoea [Unknown]
  - Embolism [Unknown]
  - Nausea [Unknown]
  - Infection [Unknown]
  - Fatigue [Unknown]
  - Vomiting [Unknown]
  - Neutropenia [Unknown]
  - Decreased appetite [Unknown]
  - Biliary obstruction [Unknown]
  - Thrombocytopenia [Unknown]
  - Palmar-plantar erythrodysaesthesia syndrome [Unknown]
